FAERS Safety Report 13894579 (Version 2)
Quarter: 2019Q2

REPORT INFORMATION
  Report Type: Report from Study
  Country: None (occurrence: US)
  Receive Date: 20170823
  Receipt Date: 20190501
  Transmission Date: 20190711
  Serious: Yes (Hospitalization)
  Sender: FDA-Public Use
  Company Number: US-ABBVIE-16K-163-1821771-00

PATIENT
  Sex: Male
  Weight: 72.64 kg

DRUGS (6)
  1. OLANZAPINE. [Concomitant]
     Active Substance: OLANZAPINE
     Indication: POST-TRAUMATIC STRESS DISORDER
  2. FLUOXETINE [Concomitant]
     Active Substance: FLUOXETINE HYDROCHLORIDE
     Indication: POST-TRAUMATIC STRESS DISORDER
  3. KLONOPIN [Concomitant]
     Active Substance: CLONAZEPAM
     Indication: ANXIETY
  4. HUMIRA [Suspect]
     Active Substance: ADALIMUMAB
     Indication: CROHN^S DISEASE
     Dosage: ONCE ON 7TH AND 21ST OF THE MONTH
     Route: 058
     Dates: start: 20150501, end: 201902
  5. OMEPRAZOLE. [Concomitant]
     Active Substance: OMEPRAZOLE
     Indication: DYSPEPSIA
  6. HUMIRA [Suspect]
     Active Substance: ADALIMUMAB
     Indication: COLITIS
     Dosage: ONCE ON 7TH AND 21ST OF THE MONTH
     Route: 058
     Dates: start: 201902

REACTIONS (8)
  - Drug intolerance [Recovered/Resolved]
  - Pain [Unknown]
  - Abdominal distension [Not Recovered/Not Resolved]
  - Condition aggravated [Recovered/Resolved]
  - Constipation [Recovered/Resolved]
  - Therapeutic product effect incomplete [Recovered/Resolved]
  - Abdominal pain upper [Not Recovered/Not Resolved]
  - Diarrhoea haemorrhagic [Recovered/Resolved]

NARRATIVE: CASE EVENT DATE: 2015
